FAERS Safety Report 6404079-7 (Version None)
Quarter: 2009Q4

REPORT INFORMATION
  Report Type: 
  Country: None (occurrence: None)
  Receive Date: 20091016
  Receipt Date: 20091006
  Transmission Date: 20100525
  Serious: Yes (Other)
  Sender: FDA-Public Use
  Company Number: US-PFIZER INC-2009280122

PATIENT
  Sex: Female
  Weight: 67.131 kg

DRUGS (8)
  1. TIKOSYN [Suspect]
     Dosage: FREQUENCY: 2X/DAY,
     Route: 048
     Dates: start: 20050922
  2. OMEGA-3 TRIGLYCERIDES [Concomitant]
     Route: 048
     Dates: start: 20080901
  3. MURO 128 [Concomitant]
     Indication: CORNEAL DISORDER
  4. ALKALOL [Concomitant]
     Indication: SINUS DISORDER
     Dosage: FREQUENCY: 2X/DAY,
  5. RHINOCORT [Concomitant]
     Dosage: FREQUENCY: 2X/DAY,
     Dates: start: 19990101
  6. CALCIUM [Concomitant]
     Route: 048
  7. CALCIUM/VITAMIN D/VITAMIN K [Concomitant]
     Dosage: 500 MG, 2X/DAY
     Route: 048
  8. ACETYLSALICYLIC ACID [Concomitant]
     Dosage: 81 MG, 1X/DAY
     Route: 048

REACTIONS (7)
  - ACCIDENT [None]
  - ARRHYTHMIA [None]
  - BLOOD CHOLESTEROL INCREASED [None]
  - GASTROOESOPHAGEAL REFLUX DISEASE [None]
  - HYPERTENSION [None]
  - NEOPLASM MALIGNANT [None]
  - URINARY TRACT INFECTION [None]
